FAERS Safety Report 7623761-7 (Version None)
Quarter: 2011Q3

REPORT INFORMATION
  Report Type: 
  Country: None (occurrence: None)
  Receive Date: 20110720
  Receipt Date: 20110712
  Transmission Date: 20111222
  Serious: Yes (Hospitalization, Other)
  Sender: FDA-Public Use
  Company Number: JP-GLAXOSMITHKLINE-B0730484A

PATIENT
  Sex: Female

DRUGS (2)
  1. PREDNISOLONE [Concomitant]
  2. PROMACTA [Suspect]
     Indication: PRODUCT USED FOR UNKNOWN INDICATION
     Route: 048
     Dates: start: 20110524

REACTIONS (2)
  - ARTERIAL THROMBOSIS LIMB [None]
  - PULMONARY INFARCTION [None]
